FAERS Safety Report 7626567-8 (Version None)
Quarter: 2011Q3

REPORT INFORMATION
  Report Type: 
  Country: None (occurrence: None)
  Receive Date: 20110721
  Receipt Date: 20110713
  Transmission Date: 20111222
  Serious: Yes (Hospitalization)
  Sender: FDA-Public Use
  Company Number: JP-GLAXOSMITHKLINE-B0715550A

PATIENT
  Sex: Female
  Weight: 62 kg

DRUGS (14)
  1. CYTARABINE [Concomitant]
     Indication: STEM CELL TRANSPLANT
     Dosage: 628MG PER DAY
     Route: 042
     Dates: start: 20101002, end: 20101005
  2. MERISLON [Concomitant]
     Dosage: 18MG PER DAY
     Route: 048
     Dates: start: 20101001, end: 20101015
  3. FUNGUARD [Concomitant]
     Dosage: 50MG PER DAY
     Route: 042
     Dates: start: 20101002, end: 20101025
  4. CYMERIN [Suspect]
     Indication: STEM CELL TRANSPLANT
     Dosage: 470MG PER DAY
     Route: 042
     Dates: start: 20101001, end: 20101001
  5. PURSENNID [Concomitant]
     Dosage: 24MG PER DAY
     Route: 048
     Dates: start: 20101001, end: 20101007
  6. DECADRON [Concomitant]
     Dosage: .5MG PER DAY
     Route: 048
     Dates: start: 20101005, end: 20101008
  7. VEPESID [Suspect]
     Indication: STEM CELL TRANSPLANT
     Dosage: 314MG PER DAY
     Route: 042
     Dates: start: 20101002, end: 20101005
  8. FUROSEMIDE [Concomitant]
     Dosage: 20MG PER DAY
     Route: 042
     Dates: start: 20101002, end: 20101022
  9. RAMELTEON [Concomitant]
     Dosage: .3MG PER DAY
     Route: 042
     Dates: start: 20101001, end: 20101006
  10. LANSOPRAZOLE [Concomitant]
     Dosage: 15MG PER DAY
     Route: 048
     Dates: start: 20101002, end: 20101025
  11. EMEND [Concomitant]
     Dosage: 80MG PER DAY
     Route: 048
     Dates: start: 20101005, end: 20101008
  12. ALKERAN [Suspect]
     Indication: STEM CELL TRANSPLANT
     Dosage: 220MG PER DAY
     Route: 042
     Dates: start: 20101006, end: 20101006
  13. URSO 250 [Concomitant]
     Dosage: 600MG PER DAY
     Route: 048
     Dates: start: 20101001, end: 20101015
  14. NATEGLINIDE [Concomitant]
     Dosage: 270MG PER DAY
     Route: 048
     Dates: start: 20101001, end: 20101108

REACTIONS (2)
  - FEBRILE NEUTROPENIA [None]
  - DIARRHOEA [None]
